FAERS Safety Report 22288900 (Version 1)
Quarter: 2023Q2

REPORT INFORMATION
  Report Type: Spontaneous
  Country: US (occurrence: US)
  Receive Date: 20230505
  Receipt Date: 20230505
  Transmission Date: 20230722
  Serious: Yes (Hospitalization, Other)
  Sender: FDA-Public Use
  Company Number: US-PFIZER INC-202300178380

PATIENT
  Age: 90 Year
  Sex: Male
  Weight: 86.18 kg

DRUGS (1)
  1. VYNDAMAX [Suspect]
     Active Substance: TAFAMIDIS
     Indication: Amyloidosis
     Dosage: 61MG CAPSULE ONCE A DAY BY MOUTH
     Route: 048
     Dates: end: 20230426

REACTIONS (6)
  - Sepsis [Unknown]
  - Pneumonia [Unknown]
  - Pleural effusion [Unknown]
  - Dyspnoea [Unknown]
  - Near death experience [Unknown]
  - Off label use [Unknown]
